FAERS Safety Report 7477523-4 (Version None)
Quarter: 2011Q2

REPORT INFORMATION
  Report Type: 
  Country: None (occurrence: None)
  Receive Date: 20110511
  Receipt Date: 20110511
  Transmission Date: 20111010
  Serious: No
  Sender: FDA-Public Use
  Company Number: None

PATIENT
  Sex: Female
  Weight: 81.6475 kg

DRUGS (3)
  1. PREVACID [Suspect]
     Indication: PEPTIC ULCER
     Dosage: 1 DAILY PO
     Route: 048
     Dates: start: 20000531, end: 20000710
  2. COUMADIN - OR WARFARIN [Concomitant]
  3. ACIPHEX [Suspect]
     Dosage: 1 DAILY PO
     Route: 048
     Dates: start: 20020914, end: 20030927

REACTIONS (3)
  - PAIN [None]
  - DIARRHOEA [None]
  - MUSCLE SPASMS [None]
